FAERS Safety Report 24344107 (Version 2)
Quarter: 2024Q4

REPORT INFORMATION
  Report Type: Spontaneous
  Country: US (occurrence: US)
  Receive Date: 20240920
  Receipt Date: 20241220
  Transmission Date: 20250115
  Serious: No
  Sender: BRAEBURN PHARMACEUTICALS
  Company Number: US-BRAEBURN-US-BRA-24-000768

PATIENT
  Sex: Female

DRUGS (1)
  1. BRIXADI [Suspect]
     Active Substance: BUPRENORPHINE
     Indication: Drug dependence
     Dosage: 24 MILLIGRAM, WEEKLY
     Route: 058
     Dates: start: 20240813

REACTIONS (2)
  - Sleep paralysis [Recovered/Resolved]
  - Withdrawal syndrome [Recovered/Resolved]
